FAERS Safety Report 18588047 (Version 1)
Quarter: 2020Q4

REPORT INFORMATION
  Report Type: Report from Study
  Country: US (occurrence: US)
  Receive Date: 20201207
  Receipt Date: 20201207
  Transmission Date: 20210114
  Serious: Yes (Other)
  Sender: FDA-Public Use
  Company Number: US-JAZZ-2019-US-013600

PATIENT
  Sex: Female

DRUGS (34)
  1. XYREM [Suspect]
     Active Substance: SODIUM OXYBATE
     Dosage: DOSE ADJUSTMENT
     Route: 048
     Dates: start: 201606, end: 201903
  2. DULOXETINE HCL [Concomitant]
     Active Substance: DULOXETINE HYDROCHLORIDE
  3. CYANOCOBALAMIN. [Concomitant]
     Active Substance: CYANOCOBALAMIN
  4. NAPROXEN SODIUM. [Concomitant]
     Active Substance: NAPROXEN SODIUM
  5. FAMOTIDINE. [Concomitant]
     Active Substance: FAMOTIDINE
  6. FLECAINIDE ACETATE. [Concomitant]
     Active Substance: FLECAINIDE ACETATE
  7. VITAMIN C [Concomitant]
     Active Substance: ASCORBIC ACID
  8. VITAMIN D3 [Concomitant]
     Active Substance: CHOLECALCIFEROL
  9. LORATADINE. [Concomitant]
     Active Substance: LORATADINE
  10. TIZANIDINE HCL [Concomitant]
     Active Substance: TIZANIDINE HYDROCHLORIDE
  11. TYLENOL 8HR [Concomitant]
     Active Substance: ACETAMINOPHEN
  12. NYSTATIN. [Concomitant]
     Active Substance: NYSTATIN
  13. POTASSIUM CHLORIDE. [Concomitant]
     Active Substance: POTASSIUM CHLORIDE
  14. BACTRIM DS [Concomitant]
     Active Substance: SULFAMETHOXAZOLE\TRIMETHOPRIM
  15. SOLU-CORTEF [Concomitant]
     Active Substance: HYDROCORTISONE SODIUM SUCCINATE
  16. ONDANSETRON [Concomitant]
     Active Substance: ONDANSETRON
  17. XYREM [Suspect]
     Active Substance: SODIUM OXYBATE
     Indication: NARCOLEPSY
     Dosage: 2.25 G, BID
     Route: 048
     Dates: start: 201605, end: 201606
  18. XYREM [Suspect]
     Active Substance: SODIUM OXYBATE
     Dosage: 3 G, BID
     Route: 048
     Dates: start: 201903
  19. ELIQUIS [Concomitant]
     Active Substance: APIXABAN
  20. HYDROCORTISONE. [Concomitant]
     Active Substance: HYDROCORTISONE
  21. ATENOLOL. [Concomitant]
     Active Substance: ATENOLOL
  22. CALCIUM CARBONATE. [Concomitant]
     Active Substance: CALCIUM CARBONATE
  23. GABAPENTIN. [Concomitant]
     Active Substance: GABAPENTIN
  24. MUCINEX [Concomitant]
     Active Substance: GUAIFENESIN
  25. OXCARBAZEPINE. [Concomitant]
     Active Substance: OXCARBAZEPINE
  26. SINGULAIR [Concomitant]
     Active Substance: MONTELUKAST SODIUM
  27. AMITRIPTYLINE HCL [Concomitant]
     Active Substance: AMITRIPTYLINE
  28. BUTALB/ACET/CAFFEINE [Concomitant]
  29. LEVAQUIN [Concomitant]
     Active Substance: LEVOFLOXACIN
  30. DICYCLOVERINE [Concomitant]
     Active Substance: DICYCLOMINE HYDROCHLORIDE
  31. ALBUTEROL SULFATE. [Concomitant]
     Active Substance: ALBUTEROL SULFATE
  32. MECLIZINE [Concomitant]
     Active Substance: MECLIZINE HYDROCHLORIDE
  33. OMEPRAZOLE. [Concomitant]
     Active Substance: OMEPRAZOLE
  34. XOPENEX [Concomitant]
     Active Substance: LEVALBUTEROL HYDROCHLORIDE

REACTIONS (9)
  - Tooth abscess [Unknown]
  - Fibromyalgia [Unknown]
  - Contusion [Unknown]
  - Depression [Unknown]
  - Eye haemorrhage [Unknown]
  - Tooth fracture [Unknown]
  - Swelling [Unknown]
  - Disability [Unknown]
  - Tooth extraction [Unknown]

NARRATIVE: CASE EVENT DATE: 2019
